FAERS Safety Report 7829595-2 (Version None)
Quarter: 2011Q4

REPORT INFORMATION
  Report Type: 
  Country: None (occurrence: None)
  Receive Date: 20111020
  Receipt Date: 20110803
  Transmission Date: 20120403
  Serious: Yes (Hospitalization, Other)
  Sender: FDA-Public Use
  Company Number: PHHY2011BR20722

PATIENT
  Sex: Male

DRUGS (2)
  1. DIOVAN [Suspect]
     Indication: HYPERTENSION
     Dosage: 320 MG, 1 TABLET DAILY
     Dates: start: 20100728, end: 20100801
  2. HYGROTON [Suspect]
     Indication: HYPERTENSION
     Dosage: 25 MG, UNK

REACTIONS (2)
  - BACTERIAL DISEASE CARRIER [None]
  - BLOOD PRESSURE DECREASED [None]
